FAERS Safety Report 16773429 (Version 1)
Quarter: 2019Q3

REPORT INFORMATION
  Report Type: Spontaneous
  Country: US (occurrence: US)
  Receive Date: 20190904
  Receipt Date: 20190904
  Transmission Date: 20191005
  Serious: No
  Sender: FDA-Public Use
  Company Number: US-PURDUE-USA-2019-0147561

PATIENT

DRUGS (2)
  1. BACLOFEN. [Suspect]
     Active Substance: BACLOFEN
     Indication: PAIN
     Dosage: 20 MG, UNK
     Route: 065
     Dates: start: 201901
  2. OXYCODONE/ ACETAMINOPHEN TABLETS [Suspect]
     Active Substance: ACETAMINOPHEN\OXYCODONE HYDROCHLORIDE
     Indication: PAIN
     Dosage: (10X325 MG) 1 TABLET, BID PRN
     Route: 048
     Dates: start: 201901

REACTIONS (1)
  - Therapeutic product effect decreased [Unknown]
